FAERS Safety Report 5697416-2 (Version None)
Quarter: 2008Q2

REPORT INFORMATION
  Report Type: 
  Country: None (occurrence: None)
  Receive Date: 20080407
  Receipt Date: 20080401
  Transmission Date: 20081010
  Serious: Yes (Other)
  Sender: FDA-Public Use
  Company Number: PHHY2008JP04365

PATIENT
  Sex: Male

DRUGS (1)
  1. RITALIN [Suspect]
     Route: 048
     Dates: start: 20070501, end: 20071231

REACTIONS (3)
  - ANORECTAL DISORDER [None]
  - MYALGIA [None]
  - SENSORY DISTURBANCE [None]
